FAERS Safety Report 21974712 (Version 1)
Quarter: 2023Q1

REPORT INFORMATION
  Report Type: Spontaneous
  Country: US (occurrence: US)
  Receive Date: 20230209
  Receipt Date: 20230209
  Transmission Date: 20230418
  Serious: Yes (Hospitalization)
  Sender: FDA-Public Use
  Company Number: US-ELI_LILLY_AND_COMPANY-US202302000725

PATIENT
  Age: 78 Year
  Sex: Female
  Weight: 52.3 kg

DRUGS (4)
  1. ADCIRCA [Suspect]
     Active Substance: TADALAFIL
     Indication: Product used for unknown indication
     Dosage: UNK UNK, UNKNOWN
     Route: 065
  2. SELEXIPAG [Suspect]
     Active Substance: SELEXIPAG
     Indication: Pulmonary arterial hypertension
     Dosage: 400 UG, OTHER (ONE TIME EVERY 5 DAYS)
     Route: 048
     Dates: end: 20221225
  3. MACITENTAN [Suspect]
     Active Substance: MACITENTAN
     Indication: Product used for unknown indication
     Dosage: UNK UNK, UNKNOWN
     Route: 048
  4. APIXABAN [Concomitant]
     Active Substance: APIXABAN
     Indication: Product used for unknown indication

REACTIONS (8)
  - Spinal fracture [Unknown]
  - Fall [Unknown]
  - Gastrointestinal haemorrhage [Unknown]
  - Throat irritation [Unknown]
  - Oesophageal irritation [Unknown]
  - Cardiac disorder [Unknown]
  - Dizziness [Unknown]
  - Headache [Unknown]

NARRATIVE: CASE EVENT DATE: 20221201
